FAERS Safety Report 7620378-5 (Version None)
Quarter: 2011Q3

REPORT INFORMATION
  Report Type: 
  Country: None (occurrence: None)
  Receive Date: 20110718
  Receipt Date: 20110718
  Transmission Date: 20111222
  Serious: No
  Sender: FDA-Public Use
  Company Number: None

PATIENT
  Age: 76 Year
  Sex: Male
  Weight: 74.842 kg

DRUGS (2)
  1. SEROQUEL [Suspect]
     Indication: DEMENTIA
     Dates: start: 20100101, end: 20110715
  2. ZYPREXA [Concomitant]
     Indication: DEPRESSION

REACTIONS (1)
  - SOMNOLENCE [None]
